FAERS Safety Report 7078463 (Version 7)
Quarter: 2014Q2

REPORT INFORMATION
  Report Type: Spontaneous
  Country: US (occurrence: US)
  Receive Date: 20090811
  Receipt Date: 20140407
  Transmission Date: 20141212
  Serious: Yes (Death, Hospitalization)
  Sender: FDA-Public Use
  Company Number: US-ALEXION-A200900622

PATIENT
  Age: 69 Year
  Sex: Male
  Weight: 94 kg

DRUGS (17)
  1. SOLIRIS [Suspect]
     Indication: PAROXYSMAL NOCTURNAL HAEMOGLOBINURIA
     Dosage: 600 MG, QW
     Route: 042
     Dates: start: 20090619, end: 20090709
  2. SOLIRIS [Suspect]
     Dosage: 900 MG, Q2W
     Route: 042
     Dates: start: 20090716, end: 2009
  3. SOLIRIS [Suspect]
     Dosage: 600 MG, QW
     Route: 042
     Dates: start: 20090903, end: 20090925
  4. SPIRONOLACTONE [Concomitant]
     Dosage: 25 MG, BID
  5. PLAVIX                             /01220702/ [Concomitant]
     Dosage: 25 MG, QOD
  6. CALCITRIOL [Concomitant]
     Dosage: 0.25 UG, QD
  7. SIMVASTATIN [Concomitant]
     Dosage: 40 MG, 1/2 A TAB ALTERNATING WITH A WHOLE TAB DAILY
  8. SIMVASTATIN [Concomitant]
     Dosage: 80 MG, EVERY OTHER DAY
  9. FOLIC ACID [Concomitant]
     Dosage: 1 MG, QD
  10. METOPROLOL [Concomitant]
     Dosage: 25 MG, BID
  11. ALLOPURINOL [Concomitant]
     Dosage: 150 MG, QD
  12. DEMADEX                            /01036501/ [Concomitant]
     Dosage: 20 MG, QD
  13. ALBUTEROL SULFATE                  /00139502/ [Concomitant]
     Indication: WHEEZING
     Dosage: 1.25 MG/3 ML PRN NEB SOLUTION
  14. FERREX [Concomitant]
     Dosage: 150 MG, QD
  15. AMLODIPINE [Concomitant]
     Dosage: 10 MG, QD
  16. OMEPRAZOLE [Concomitant]
     Dosage: 20 MG, QD
  17. ARANESP [Concomitant]
     Indication: HAEMOGLOBIN ABNORMAL
     Dosage: 100 MCG/0.5 ML SYRINGE WEEKLY

REACTIONS (29)
  - Cardiac disorder [Fatal]
  - Cardiac failure chronic [Unknown]
  - Renal failure acute [Unknown]
  - Acute respiratory failure [Recovering/Resolving]
  - Pneumonia klebsiella [Unknown]
  - Hypertensive nephropathy [Unknown]
  - Cellulitis [Unknown]
  - Anaemia [Unknown]
  - Pleural effusion [Unknown]
  - Nail hypertrophy [Unknown]
  - Leukaemoid reaction [Unknown]
  - Renal failure chronic [Unknown]
  - Cardiac valve disease [Unknown]
  - Foreign body [Unknown]
  - Coronary artery disease [Unknown]
  - Hyperlipidaemia [Unknown]
  - Gout [Unknown]
  - Sleep apnoea syndrome [Unknown]
  - Leukocytosis [Unknown]
  - Spleen disorder [Unknown]
  - Oral disorder [Unknown]
  - Hyperparathyroidism [Unknown]
  - Asthma [Unknown]
  - Coagulopathy [Unknown]
  - Hypotension [Unknown]
  - Thrombocytopenia [Unknown]
  - Epistaxis [Recovered/Resolved]
  - Fatigue [Not Recovered/Not Resolved]
  - Sinusitis [Unknown]
